FAERS Safety Report 4999915-5 (Version None)
Quarter: 2006Q2

REPORT INFORMATION
  Report Type: 
  Country: None (occurrence: None)
  Receive Date: 20060509
  Receipt Date: 20060424
  Transmission Date: 20061013
  Serious: Yes (Life-Threatening, Hospitalization, Other)
  Sender: FDA-Public Use
  Company Number: EWC050644488

PATIENT
  Age: 68 Year
  Sex: Male
  Weight: 63 kg

DRUGS (19)
  1. PEMETREXED (PEMETREXED) VIAL [Suspect]
     Indication: PLEURAL MESOTHELIOMA
     Dosage: 500 MG/M2, OTHER, INTRAVENOUS
     Route: 042
     Dates: start: 20050413, end: 20050707
  2. CARBOPLATIN [Suspect]
     Indication: PLEURAL MESOTHELIOMA
     Dosage: 5, INTRAVENOUS
     Route: 042
     Dates: start: 20050413, end: 20050707
  3. LASIX (FUROSEMIDE /00032601/) [Concomitant]
  4. TENORMIN [Concomitant]
  5. OMEPRAZOLE [Concomitant]
  6. ALLOPURINOL [Concomitant]
  7. DEANXIT [Concomitant]
  8. ALPRAZ (ALPRAZOLAM) [Concomitant]
  9. LORMETAZEPAM (LORMETAZEPAM) [Concomitant]
  10. CASODEX [Concomitant]
  11. AERIUS (DESLORATADINE) [Concomitant]
  12. VITAMIN B12 [Concomitant]
  13. DEXAMETHASONE [Concomitant]
  14. TENORMIN [Concomitant]
  15. ALLOPURINOL [Concomitant]
  16. ENOXAPARIN SODIUM [Concomitant]
  17. FOLIC ACID [Concomitant]
  18. CORTICOSTERIOD [Concomitant]
  19. MOTILIUM *ESTEVE* (DOMPERIDONE) [Concomitant]

REACTIONS (11)
  - ANAEMIA [None]
  - CEREBROVASCULAR ACCIDENT [None]
  - CHOLECYSTITIS [None]
  - FEBRILE NEUTROPENIA [None]
  - GENERAL PHYSICAL HEALTH DETERIORATION [None]
  - GRAND MAL CONVULSION [None]
  - HYPOKALAEMIA [None]
  - PENILE DISCHARGE [None]
  - PURULENT DISCHARGE [None]
  - STAPHYLOCOCCAL INFECTION [None]
  - THROMBOCYTOPENIA [None]
